FAERS Safety Report 6825991-0 (Version None)
Quarter: 2010Q3

REPORT INFORMATION
  Report Type: 
  Country: None (occurrence: None)
  Receive Date: 20100709
  Receipt Date: 20100701
  Transmission Date: 20110219
  Serious: Yes (Hospitalization)
  Sender: FDA-Public Use
  Company Number: US-JNJFOC-20100304710

PATIENT
  Sex: Male
  Weight: 97.52 kg

DRUGS (8)
  1. DURAGESIC-100 [Suspect]
     Indication: BACK PAIN
     Route: 062
  2. DURAGESIC-100 [Suspect]
     Route: 062
  3. DURAGESIC-100 [Suspect]
     Route: 062
  4. PROTONIX [Concomitant]
     Indication: ABDOMINAL PAIN UPPER
     Route: 048
  5. NORCO [Concomitant]
     Indication: BREAKTHROUGH PAIN
     Route: 048
  6. CELEBREX [Concomitant]
     Indication: ARTHRITIS
     Route: 048
  7. ADVAIR DISKUS 100/50 [Concomitant]
     Indication: HYPERSENSITIVITY
  8. VICODIN [Concomitant]
     Indication: PAIN

REACTIONS (6)
  - ARTHRITIS [None]
  - ASTHMA [None]
  - DRUG INEFFECTIVE [None]
  - PAIN [None]
  - PRODUCT ADHESION ISSUE [None]
  - SEXUAL DYSFUNCTION [None]
